FAERS Safety Report 8116016-8 (Version None)
Quarter: 2012Q1

REPORT INFORMATION
  Report Type: 
  Country: None (occurrence: None)
  Receive Date: 20120206
  Receipt Date: 20120131
  Transmission Date: 20120608
  Serious: Yes (Hospitalization)
  Sender: FDA-Public Use
  Company Number: FR-ROCHE-1035579

PATIENT
  Sex: Female

DRUGS (8)
  1. AVASTIN [Suspect]
     Indication: LUNG ADENOCARCINOMA
     Route: 042
     Dates: start: 20111019
  2. CISPLATIN [Suspect]
     Indication: LUNG ADENOCARCINOMA
     Route: 042
     Dates: start: 20111019
  3. ALIMTA [Suspect]
     Indication: LUNG ADENOCARCINOMA
     Route: 042
     Dates: start: 20111019
  4. CISPLATIN [Suspect]
     Dates: start: 20111107
  5. CISPLATIN [Suspect]
     Dates: start: 20111201
  6. AVASTIN [Suspect]
     Dates: start: 20111201
  7. ALIMTA [Suspect]
     Dates: start: 20111107
  8. ALIMTA [Suspect]
     Dates: start: 20111201

REACTIONS (1)
  - PHLEBITIS [None]
